FAERS Safety Report 7371450 (Version 4)
Quarter: 2012Q4

REPORT INFORMATION
  Report Type: 
  Country: DE (occurrence: DE)
  Receive Date: 20100430
  Receipt Date: 20121023
  Transmission Date: 20130627
  Serious: Yes (Death, Life-Threatening, Hospitalization)
  Sender: FDA-Public Use
  Company Number: DE-RANBAXY-2010RR-33407

PATIENT
  Age: 84 Year
  Sex: Female
  Weight: 72 kg

DRUGS (15)
  1. SPIRONOLACTONE [Suspect]
     Indication: PRODUCT USED FOR UNKNOWN INDICATION
     Dosage: 25 mg, qd
     Route: 065
     Dates: start: 20091006, end: 20091126
  2. XIPAMID [Interacting]
     Indication: HYPERTENSION
     Dosage: 10 mg, qd
     Route: 048
     Dates: start: 20091006, end: 20091126
  3. TORASEMID [Interacting]
     Indication: HYPERTENSION
     Dosage: 5 mg, qd
     Route: 048
     Dates: start: 20091006, end: 20091126
  4. RAMIPRIL [Interacting]
     Indication: HYPERTENSION
     Dosage: 2.5 mg, qd
     Route: 048
     Dates: start: 20091006, end: 20091126
  5. MICTONORM [Interacting]
     Indication: STRESS URINARY INCONTINENCE
     Dosage: 15 mg, qd
     Route: 048
     Dates: start: 20091006, end: 20091126
  6. MELPERON [Interacting]
     Indication: VASCULAR DEMENTIA
     Dosage: 25 mg, qd
     Route: 048
     Dates: start: 20091006, end: 20091126
  7. AKINETON [Concomitant]
     Indication: EXTRAPYRAMIDAL DISORDER
     Dosage: 2 mg, qd
     Route: 048
     Dates: start: 20091006
  8. ZOLPIDEM AL 5 MG [Concomitant]
     Indication: INITIAL INSOMNIA
     Dosage: 5 mg, qd
     Route: 048
     Dates: start: 20091006, end: 20091126
  9. PANTOPRAZOL 40 MG [Concomitant]
     Indication: PROPHYLAXIS AGAINST GASTROINTESTINAL ULCER
     Dosage: 40 mg, qd
     Route: 048
     Dates: start: 20091006, end: 20091126
  10. ISCOVER [Concomitant]
     Indication: ISCHAEMIC HEART DISEASE PROPHYLAXIS
     Dosage: 75 mg, qd
     Route: 048
     Dates: start: 20091006
  11. SIMVASTATIN [Concomitant]
     Indication: ISCHAEMIC HEART DISEASE PROPHYLAXIS
     Dosage: 20 mg, qd
     Route: 048
     Dates: start: 20091006, end: 20091126
  12. LEVOFLOXACIN [Concomitant]
     Indication: URINARY TRACT INFECTION
     Dosage: UNK
     Route: 065
     Dates: start: 2009
  13. FENISTIL [Concomitant]
     Indication: PRURITUS
     Dosage: UNK
     Route: 065
     Dates: start: 2009
  14. DIPIPERON [Concomitant]
     Indication: PRODUCT USED FOR UNKNOWN INDICATION
     Dosage: UNK
     Route: 065
     Dates: start: 2009
  15. CLEXANE [Concomitant]
     Indication: PRODUCT USED FOR UNKNOWN INDICATION
     Dosage: UNK
     Route: 065

REACTIONS (2)
  - Renal failure acute [Recovered/Resolved]
  - Drug interaction [Recovered/Resolved]
